FAERS Safety Report 16768824 (Version 1)
Quarter: 2019Q3

REPORT INFORMATION
  Report Type: Spontaneous
  Country: US (occurrence: US)
  Receive Date: 20190903
  Receipt Date: 20190903
  Transmission Date: 20191005
  Serious: No
  Sender: FDA-Public Use
  Company Number: US-SA-2019SA239002

PATIENT
  Sex: Female

DRUGS (1)
  1. ICY HOT DRY SPRAY (LIDOCAINE\MENTHOL) [Suspect]
     Active Substance: LIDOCAINE\MENTHOL

REACTIONS (3)
  - Drug ineffective [Unknown]
  - Miliaria [Unknown]
  - Erythema [Unknown]
